FAERS Safety Report 17128546 (Version 2)
Quarter: 2020Q1

REPORT INFORMATION
  Report Type: Spontaneous
  Country: DE (occurrence: DE)
  Receive Date: 20191209
  Receipt Date: 20200103
  Transmission Date: 20200409
  Serious: Yes (Other)
  Sender: FDA-Public Use
  Company Number: PHHY2019DE160749

PATIENT
  Age: 79 Year
  Sex: Male
  Weight: 58 kg

DRUGS (2)
  1. JAKAVI [Suspect]
     Active Substance: RUXOLITINIB
     Indication: MYELOFIBROSIS
     Dosage: 10 MG, QD (STARTED 06 YEARS AGO)
     Route: 065
  2. EXJADE [Suspect]
     Active Substance: DEFERASIROX
     Indication: PRODUCT USED FOR UNKNOWN INDICATION
     Dosage: 360 MG, (4 TABLETS PER DAY) (STARTED 06 YEARS AGO)
     Route: 065
     Dates: end: 201909

REACTIONS (4)
  - Serum ferritin increased [Unknown]
  - Diarrhoea [Recovering/Resolving]
  - Myelofibrosis [Not Recovered/Not Resolved]
  - Haemoglobin decreased [Unknown]

NARRATIVE: CASE EVENT DATE: 20130426
